FAERS Safety Report 4729109-X (Version None)
Quarter: 2005Q3

REPORT INFORMATION
  Report Type: 
  Country: None (occurrence: None)
  Receive Date: 20050729
  Receipt Date: 20040224
  Transmission Date: 20060218
  Serious: No
  Sender: FDA-Public Use
  Company Number: US-GLAXOSMITHKLINE-A0499636A

PATIENT
  Age: 53 Year
  Sex: Female

DRUGS (6)
  1. IMITREX [Suspect]
     Route: 048
  2. IMITREX [Suspect]
     Indication: MIGRAINE
     Dosage: 1INJ AS REQUIRED
     Route: 058
     Dates: start: 19940101
  3. IMITREX [Suspect]
     Dosage: 100MG AS REQUIRED
     Route: 048
     Dates: start: 19940401
  4. PREMARIN [Concomitant]
  5. LEXAPRO [Concomitant]
  6. LORAZEPAM [Concomitant]

REACTIONS (5)
  - DRUG INEFFECTIVE [None]
  - MUSCLE TIGHTNESS [None]
  - PERIPHERAL COLDNESS [None]
  - PHARMACEUTICAL PRODUCT COMPLAINT [None]
  - VOMITING [None]
